FAERS Safety Report 25979055 (Version 1)
Quarter: 2025Q4

REPORT INFORMATION
  Report Type: Spontaneous
  Country: EU (occurrence: EU)
  Receive Date: 20251030
  Receipt Date: 20251030
  Transmission Date: 20260117
  Serious: Yes (Other)
  Sender: CHEPLAPHARM
  Company Number: None

PATIENT
  Age: 79 Year
  Sex: Female
  Weight: 70 kg

DRUGS (4)
  1. CAPECITABINE [Suspect]
     Active Substance: CAPECITABINE
     Indication: Breast cancer
     Dates: start: 20250819
  2. FULVESTRANT [Concomitant]
     Active Substance: FULVESTRANT
     Indication: Diarrhoea
     Dates: start: 202501
  3. TAMOXIFEN [Concomitant]
     Active Substance: TAMOXIFEN
     Dates: start: 202504
  4. EXEMESTANE [Concomitant]
     Active Substance: EXEMESTANE
     Dates: start: 202407

REACTIONS (3)
  - Chest pain [Not Recovered/Not Resolved]
  - Arteriosclerosis coronary artery [Unknown]
  - Dyspnoea [Unknown]

NARRATIVE: CASE EVENT DATE: 20250801
